FAERS Safety Report 18569570 (Version 2)
Quarter: 2020Q4

REPORT INFORMATION
  Report Type: Report from Study
  Country: FR (occurrence: FR)
  Receive Date: 20201202
  Receipt Date: 20201204
  Transmission Date: 20210114
  Serious: Yes (Hospitalization)
  Sender: FDA-Public Use
  Company Number: NVSC2020FR313278

PATIENT
  Age: 26 Year
  Sex: Female

DRUGS (7)
  1. SECUKINUMAB. [Suspect]
     Active Substance: SECUKINUMAB
     Indication: HIDRADENITIS
     Dosage: 300 MG, Q4W
     Route: 058
     Dates: start: 20201007
  2. MIRTAZAPINE. [Concomitant]
     Active Substance: MIRTAZAPINE
     Indication: ANXIETY
     Dosage: UNK
     Route: 065
     Dates: start: 20200713, end: 20201102
  3. ESTRADIOL. [Concomitant]
     Active Substance: ESTRADIOL
     Indication: CONTRACEPTION
     Dosage: UNK
     Route: 065
     Dates: start: 20190101
  4. OFLOXACINE [Concomitant]
     Active Substance: OFLOXACIN
     Indication: PYELOCYSTITIS
     Dosage: UNK
     Route: 065
     Dates: start: 20201103, end: 20201110
  5. MIRTAZAPINE. [Concomitant]
     Active Substance: MIRTAZAPINE
     Dosage: UNK
     Route: 065
     Dates: start: 20201118
  6. MIRTAZAPINE. [Concomitant]
     Active Substance: MIRTAZAPINE
     Dosage: UNK
     Route: 065
     Dates: start: 20201103, end: 20201118
  7. FOSFOMYCINE [Concomitant]
     Active Substance: FOSFOMYCIN
     Indication: PYELONEPHRITIS
     Dosage: UNK
     Route: 065
     Dates: start: 20201102, end: 20201102

REACTIONS (1)
  - Syncope [Not Recovered/Not Resolved]

NARRATIVE: CASE EVENT DATE: 20201118
